FAERS Safety Report 11626928 (Version 1)
Quarter: 2015Q4

REPORT INFORMATION
  Report Type: Spontaneous
  Country: US (occurrence: None)
  Receive Date: 20151013
  Receipt Date: 20151013
  Transmission Date: 20160304
  Serious: Yes (Life-Threatening, Hospitalization, Other)
  Sender: FDA-Public Use
  Company Number: ADR-2015-01307

PATIENT
  Age: 52 Year
  Sex: Female

DRUGS (2)
  1. HYDROMORPHONE INTRATHECAL 1 MG/ML [Suspect]
     Active Substance: HYDROMORPHONE
     Indication: MUSCLE SPASTICITY
     Dosage: 0.3223 MG/DAY
  2. BACLOFEN INTRATHECAL 2000 MCG/ML [Suspect]
     Active Substance: BACLOFEN
     Indication: MUSCLE SPASTICITY
     Dosage: 644.6 MCG/DAY

REACTIONS (8)
  - Drug withdrawal syndrome [None]
  - Abnormal behaviour [None]
  - Device material issue [None]
  - Mental status changes [None]
  - Disorientation [None]
  - Device power source issue [None]
  - Incorrect dose administered by device [None]
  - Confusional state [None]
